FAERS Safety Report 8303954-6 (Version None)
Quarter: 2012Q2

REPORT INFORMATION
  Report Type: 
  Country: None (occurrence: None)
  Receive Date: 20120423
  Receipt Date: 20120420
  Transmission Date: 20120825
  Serious: Yes (Hospitalization)
  Sender: FDA-Public Use
  Company Number: PHFR2011IE05722

PATIENT
  Sex: Female

DRUGS (6)
  1. ROSUVASTATIN [Concomitant]
     Dosage: 10 MG, QHS
  2. PANTOPRAZOLE [Concomitant]
     Dosage: 20 UKN, BID
  3. VALPROIC ACID [Concomitant]
     Dosage: 1000 MG, BID
  4. CLOZARIL [Suspect]
     Indication: SCHIZOPHRENIA
     Dosage: 100MG MANE 225MG NOCTE
     Route: 048
     Dates: start: 19990908
  5. VENLAFAXINE [Concomitant]
     Dosage: 150 UKN, BID
  6. METFORMIN HCL [Concomitant]
     Dosage: 500 UKN, BID

REACTIONS (2)
  - LOWER RESPIRATORY TRACT INFECTION [None]
  - MALAISE [None]
